FAERS Safety Report 9955900 (Version 1)
Quarter: 2014Q1

REPORT INFORMATION
  Report Type: Report from Study
  Country: US (occurrence: US)
  Receive Date: 20140304
  Receipt Date: 20140304
  Transmission Date: 20141002
  Serious: No
  Sender: FDA-Public Use
  Company Number: US-ABBVIE-13P-163-1090208-00

PATIENT
  Age: 56 Year
  Sex: Male

DRUGS (13)
  1. HUMIRA [Suspect]
     Indication: PSORIATIC ARTHROPATHY
     Dates: start: 201303
  2. ATENOLOL [Concomitant]
     Indication: BLOOD PRESSURE
  3. AMLODIPINE [Concomitant]
     Indication: BLOOD PRESSURE
  4. LOSARTAN [Concomitant]
     Indication: BLOOD PRESSURE
  5. TRAZODONE [Concomitant]
     Indication: DEPRESSION
  6. XANAX [Concomitant]
     Indication: ANXIETY
  7. PREDNISONE [Concomitant]
     Indication: GOUT
  8. VICODIN [Concomitant]
     Indication: PAIN
  9. ADVAIR [Concomitant]
     Indication: ASTHMA
     Dosage: 750/50 DISK
  10. METHOTREXATE [Concomitant]
     Indication: PRODUCT USED FOR UNKNOWN INDICATION
     Dosage: 8-2.5MG PILLS
  11. FOLIC ACID [Concomitant]
     Indication: PRODUCT USED FOR UNKNOWN INDICATION
  12. PRAVASTATIN [Concomitant]
     Indication: BLOOD CHOLESTEROL
  13. VENTOLIN [Concomitant]
     Indication: ASTHMA
     Route: 055

REACTIONS (3)
  - Device malfunction [Unknown]
  - Incorrect dose administered [Unknown]
  - Injection site haemorrhage [Recovered/Resolved]
